FAERS Safety Report 11129606 (Version 1)
Quarter: 2015Q2

REPORT INFORMATION
  Report Type: Spontaneous
  Country: US (occurrence: US)
  Receive Date: 20150521
  Receipt Date: 20150521
  Transmission Date: 20150821
  Serious: No
  Sender: FDA-Public Use
  Company Number: US-JNJFOC-20150422067

PATIENT
  Sex: Male

DRUGS (1)
  1. INVEGA SUSTENNA [Suspect]
     Active Substance: PALIPERIDONE PALMITATE
     Indication: SCHIZOAFFECTIVE DISORDER
     Dosage: RECEIVED ONE INJECTION ON 13-APR AND 14-APR IN AN UNSPECIFIED YEAR
     Route: 030

REACTIONS (2)
  - Dizziness [Unknown]
  - Flushing [Unknown]
